FAERS Safety Report 20581021 (Version 2)
Quarter: 2022Q2

REPORT INFORMATION
  Report Type: Spontaneous
  Country: US (occurrence: None)
  Receive Date: 20220311
  Receipt Date: 20220414
  Transmission Date: 20220720
  Serious: No
  Sender: FDA-Public Use
  Company Number: 2022A067102

PATIENT
  Sex: Male
  Weight: 81.6 kg

DRUGS (1)
  1. BYDUREON BCISE [Suspect]
     Active Substance: EXENATIDE
     Indication: Type 2 diabetes mellitus
     Route: 058

REACTIONS (10)
  - Injection site mass [Not Recovered/Not Resolved]
  - Injury associated with device [Recovered/Resolved]
  - Injection site haemorrhage [Recovered/Resolved]
  - Product dose omission issue [Unknown]
  - Wrong technique in device usage process [Unknown]
  - Device use issue [Unknown]
  - Incorrect disposal of product [Unknown]
  - Drug delivery system issue [Unknown]
  - Intentional device use issue [Unknown]
  - Needle issue [Unknown]
